FAERS Safety Report 7959583-7 (Version None)
Quarter: 2011Q4

REPORT INFORMATION
  Report Type: 
  Country: None (occurrence: None)
  Receive Date: 20111206
  Receipt Date: 20111202
  Transmission Date: 20120403
  Serious: Yes (Hospitalization)
  Sender: FDA-Public Use
  Company Number: IT-ROCHE-1018819

PATIENT
  Sex: Male

DRUGS (7)
  1. TRIMETON [Concomitant]
     Indication: ANAPHYLAXIS PROPHYLAXIS
     Route: 048
     Dates: start: 20110824, end: 20110930
  2. IRBESARTAN [Concomitant]
     Indication: HYPERTENSION
     Route: 048
  3. XELODA [Suspect]
     Indication: RECTAL CANCER
     Route: 048
     Dates: start: 20110824, end: 20110930
  4. OXALIPLATIN [Concomitant]
     Indication: RECTAL CANCER
     Route: 041
     Dates: start: 20110824, end: 20111030
  5. DEXAMETHASONE SODIUM PHOSPHATE [Concomitant]
     Indication: ANAPHYLAXIS PROPHYLAXIS
     Route: 041
     Dates: start: 20110824, end: 20110930
  6. RANIDIL [Concomitant]
     Indication: PROPHYLAXIS AGAINST GASTROINTESTINAL ULCER
     Route: 041
     Dates: start: 20110824, end: 20110930
  7. RABEPRAZOLE SODIUM [Concomitant]
     Indication: PROPHYLAXIS AGAINST GASTROINTESTINAL ULCER
     Route: 048

REACTIONS (4)
  - PULMONARY OEDEMA [None]
  - RENAL FAILURE ACUTE [None]
  - DIARRHOEA [None]
  - ELECTROLYTE IMBALANCE [None]
